FAERS Safety Report 6019968-5 (Version None)
Quarter: 2008Q4

REPORT INFORMATION
  Report Type: 
  Country: None (occurrence: None)
  Receive Date: 20081224
  Receipt Date: 20081218
  Transmission Date: 20090506
  Serious: Yes (Hospitalization)
  Sender: FDA-Public Use
  Company Number: PHHO2007IT20094

PATIENT
  Sex: Female
  Weight: 76 kg

DRUGS (1)
  1. ERL 080A ERL+TAB [Suspect]
     Indication: SYSTEMIC LUPUS ERYTHEMATOSUS
     Dosage: UNK, UNK
     Route: 048
     Dates: start: 20071106, end: 20071214

REACTIONS (10)
  - ANAEMIA [None]
  - DIARRHOEA [None]
  - EROSIVE OESOPHAGITIS [None]
  - GASTROENTERITIS [None]
  - HAEMATURIA [None]
  - HAEMORRHOIDS [None]
  - NAUSEA [None]
  - OCCULT BLOOD POSITIVE [None]
  - PROTEINURIA [None]
  - RENAL FAILURE [None]
